FAERS Safety Report 8498836-3 (Version None)
Quarter: 2012Q3

REPORT INFORMATION
  Report Type: 
  Country: None (occurrence: None)
  Receive Date: 20120710
  Receipt Date: 20120629
  Transmission Date: 20120928
  Serious: Yes (Hospitalization)
  Sender: FDA-Public Use
  Company Number: US-BIOGENIDEC-2010BI000978

PATIENT
  Age: 34 Year
  Sex: Female

DRUGS (4)
  1. DILANTIN [Concomitant]
     Indication: CONVULSION
  2. TOPAMAX [Concomitant]
     Indication: CONVULSION
  3. TYSABRI [Suspect]
     Indication: MULTIPLE SCLEROSIS
     Route: 042
     Dates: start: 20090701, end: 20100827
  4. LAMICTAL [Concomitant]
     Indication: CONVULSION
     Dates: start: 20091201

REACTIONS (7)
  - DISTURBANCE IN ATTENTION [None]
  - LETHARGY [None]
  - CONVULSION [None]
  - AMNESIA [None]
  - FATIGUE [None]
  - DEPRESSION [None]
  - CONFUSIONAL STATE [None]
